FAERS Safety Report 5096296-6 (Version None)
Quarter: 2006Q3

REPORT INFORMATION
  Report Type: 
  Country: None (occurrence: None)
  Receive Date: 20060830
  Receipt Date: 20060816
  Transmission Date: 20061208
  Serious: Yes (Life-Threatening, Hospitalization)
  Sender: FDA-Public Use
  Company Number: 2006RR-03464

PATIENT
  Age: 64 Year
  Sex: Female
  Weight: 65 kg

DRUGS (5)
  1. AMOXICILLIN [Suspect]
     Indication: LOWER RESPIRATORY TRACT INFECTION
     Dosage: 500 MG, TID, ORAL
     Route: 048
     Dates: start: 20060508, end: 20060512
  2. NAPROXEN [Suspect]
     Indication: ARTHRALGIA
     Dosage: 250MG, TID, ORAL
     Route: 048
     Dates: start: 20051004
  3. ADCAL-D3 [Concomitant]
  4. ACETAMINOPHEN W/ CODEINE [Concomitant]
  5. KLIOVANCE [Concomitant]

REACTIONS (4)
  - DRUG EFFECT DECREASED [None]
  - ENCEPHALITIS [None]
  - HEPATIC NECROSIS [None]
  - LIVER TRANSPLANT [None]
